FAERS Safety Report 8840858 (Version 1)
Quarter: 2012Q4

REPORT INFORMATION
  Report Type: Report from Study
  Country: GB (occurrence: GB)
  Receive Date: 20121015
  Receipt Date: 20121015
  Transmission Date: 20130627
  Serious: Yes (Hospitalization)
  Sender: FDA-Public Use
  Company Number: GB-ROCHE-1141288

PATIENT
  Sex: Female
  Weight: 71 kg

DRUGS (1)
  1. MABTHERA [Suspect]
     Indication: RHEUMATOID ARTHRITIS
     Dosage: Last dose prior to SAE on 29/nov/2011
     Route: 065
     Dates: start: 20110419

REACTIONS (1)
  - Device dislocation [Recovered/Resolved]
